FAERS Safety Report 5381193-9 (Version None)
Quarter: 2007Q3

REPORT INFORMATION
  Report Type: 
  Country: None (occurrence: None)
  Receive Date: 20070706
  Receipt Date: 20070626
  Transmission Date: 20080115
  Serious: Yes (Death, Hospitalization)
  Sender: FDA-Public Use
  Company Number: TR-MERCK-0707TUR00001

PATIENT
  Age: 15 Year
  Sex: Female

DRUGS (6)
  1. CANCIDAS [Suspect]
     Route: 065
  2. AMPHOTERICIN B [Concomitant]
     Route: 041
  3. AMPHOTERICIN B [Concomitant]
     Route: 041
  4. AMPHOTERICIN B [Concomitant]
     Route: 041
  5. ITRACONAZOLE [Concomitant]
     Route: 065
  6. GRANULOCYTE-MACROPHAGE COLONY STIMULATING FACTOR (UNSPECIFIED) [Concomitant]
     Route: 065

REACTIONS (1)
  - DEATH [None]
